FAERS Safety Report 12651729 (Version 1)
Quarter: 2016Q3

REPORT INFORMATION
  Report Type: Spontaneous
  Country: US (occurrence: US)
  Receive Date: 20160815
  Receipt Date: 20160815
  Transmission Date: 20161109
  Serious: No
  Sender: FDA-Public Use
  Company Number: US-009507513-1608USA003065

PATIENT
  Sex: Female

DRUGS (2)
  1. BELSOMRA [Suspect]
     Active Substance: SUVOREXANT
     Indication: SLEEP DISORDER
     Dosage: STRENGTH 15 MG, DOSE UNKNOWN, BEFORE BED TIME EACH EVENING
     Route: 048
  2. BELSOMRA [Suspect]
     Active Substance: SUVOREXANT
     Indication: SLEEP DISORDER
     Dosage: STRENGTH 10 MG, DOSE UNKNOWN, BEFORE BED TIME EACH EVENING
     Route: 048

REACTIONS (4)
  - Dyspnoea [Unknown]
  - Blood pressure abnormal [Unknown]
  - Hypoaesthesia [Unknown]
  - Poor quality sleep [Unknown]
